FAERS Safety Report 8087622-4 (Version None)
Quarter: 2012Q1

REPORT INFORMATION
  Report Type: 
  Country: None (occurrence: None)
  Receive Date: 20120128
  Receipt Date: 20110525
  Transmission Date: 20120608
  Serious: Yes (Other)
  Sender: FDA-Public Use
  Company Number: US-ABBOTT-11P-163-0728588-00

PATIENT
  Sex: Male
  Weight: 5.516 kg

DRUGS (2)
  1. HUMIRA [Suspect]
     Indication: CROHN'S DISEASE
     Route: 058
     Dates: start: 20091001, end: 20101101
  2. PRILOSEC [Concomitant]
     Indication: DYSPEPSIA

REACTIONS (3)
  - CROHN'S DISEASE [None]
  - INFECTION [None]
  - COLONIC OBSTRUCTION [None]
